FAERS Safety Report 4898494-0 (Version None)
Quarter: 2006Q1

REPORT INFORMATION
  Report Type: 
  Country: None (occurrence: None)
  Receive Date: 20060202
  Receipt Date: 20060119
  Transmission Date: 20060701
  Serious: Yes (Hospitalization)
  Sender: FDA-Public Use
  Company Number: PHBS2006CH01210

PATIENT
  Age: 94 Year
  Sex: Female

DRUGS (4)
  1. LOPRESSOR [Suspect]
     Indication: HYPERTENSION
     Dosage: 50 MG, BID
     Route: 048
     Dates: end: 20051027
  2. ADALAT [Suspect]
     Indication: HYPERTENSION
     Dosage: UNK, BID
     Route: 048
  3. COVERSUM /SCH/ [Suspect]
     Indication: HYPERTENSION
     Dosage: 4 MG, BID
     Route: 048
  4. PLAVIX [Concomitant]
     Dosage: 75 MG, UNK
     Route: 048

REACTIONS (5)
  - BRADYCARDIA [None]
  - GENERAL PHYSICAL HEALTH DETERIORATION [None]
  - ORTHOSTATIC HYPOTENSION [None]
  - SOMNOLENCE [None]
  - SYNCOPE [None]
